FAERS Safety Report 5888772-0 (Version None)
Quarter: 2008Q3

REPORT INFORMATION
  Report Type: 
  Country: None (occurrence: None)
  Receive Date: 20080917
  Receipt Date: 20080917
  Transmission Date: 20090109
  Serious: Yes (Death)
  Sender: FDA-Public Use
  Company Number: None

PATIENT
  Sex: Female
  Weight: 61.2356 kg

DRUGS (2)
  1. ALDACTONE [Suspect]
     Indication: DIARRHOEA
     Dosage: 25MG. DAILY
     Dates: start: 20060214, end: 20070308
  2. LASIX [Suspect]
     Dosage: 80 MG

REACTIONS (4)
  - COLLAPSE OF LUNG [None]
  - FLUID RETENTION [None]
  - HYPOKALAEMIA [None]
  - PULMONARY OEDEMA [None]
